FAERS Safety Report 19070237 (Version 1)
Quarter: 2021Q1

REPORT INFORMATION
  Report Type: Spontaneous
  Country: US (occurrence: US)
  Receive Date: 20210329
  Receipt Date: 20210329
  Transmission Date: 20210420
  Serious: Yes (Hospitalization, Other)
  Sender: FDA-Public Use
  Company Number: US-PAIPHARMA-2021-US-004418

PATIENT
  Age: 2 Year
  Sex: Female

DRUGS (1)
  1. LEVETIRACETAM (NON?SPECIFIC) [Suspect]
     Active Substance: LEVETIRACETAM
     Indication: EPILEPSY
     Dosage: 27 MG/KG DAILY

REACTIONS (1)
  - Status epilepticus [Recovered/Resolved]
